FAERS Safety Report 8299502-X (Version None)
Quarter: 2012Q2

REPORT INFORMATION
  Report Type: 
  Country: None (occurrence: None)
  Receive Date: 20120419
  Receipt Date: 20120413
  Transmission Date: 20120825
  Serious: Yes (Hospitalization)
  Sender: FDA-Public Use
  Company Number: US-GILEAD-2012-0051863

PATIENT
  Sex: Female

DRUGS (2)
  1. LETAIRIS [Suspect]
     Indication: PULMONARY HYPERTENSION
     Dosage: 10 MG, UNK
     Route: 048
     Dates: start: 20120211
  2. LETAIRIS [Suspect]
     Indication: CONNECTIVE TISSUE DISORDER
     Dosage: UNK
     Route: 048
     Dates: start: 20120330, end: 20120402

REACTIONS (3)
  - CARDIAC DISORDER [None]
  - HEADACHE [None]
  - LUNG DISORDER [None]
